FAERS Safety Report 7591595-8 (Version None)
Quarter: 2011Q3

REPORT INFORMATION
  Report Type: 
  Country: None (occurrence: None)
  Receive Date: 20110701
  Receipt Date: 20110701
  Transmission Date: 20111222
  Serious: Yes (Hospitalization)
  Sender: FDA-Public Use
  Company Number: None

PATIENT
  Sex: Male
  Weight: 61.23 kg

DRUGS (2)
  1. PACLITAXEL [Suspect]
     Dosage: 391.5 MG
     Dates: end: 20110615
  2. CARBOPLATIN [Suspect]
     Dosage: 800 MG
     Dates: end: 20110615

REACTIONS (1)
  - DEHYDRATION [None]
